FAERS Safety Report 5564303-X (Version None)
Quarter: 2007Q4

REPORT INFORMATION
  Report Type: 
  Country: None (occurrence: None)
  Receive Date: 20071218
  Receipt Date: 20071214
  Transmission Date: 20080405
  Serious: Yes (Death, Hospitalization, Other)
  Sender: FDA-Public Use
  Company Number: PHEH2005US10703

PATIENT
  Age: 75 Year
  Sex: Male
  Weight: 86.167 kg

DRUGS (22)
  1. AREDIA [Suspect]
  2. ZOMETA [Suspect]
     Dates: end: 20040701
  3. ANTINEOPLASTIC AGENTS [Suspect]
     Dosage: UNK, UNK
     Dates: end: 20040801
  4. PREDNISONE [Suspect]
     Indication: MYALGIA
     Dosage: 10 MG, QD
     Route: 048
  5. PREDNISONE [Suspect]
     Dosage: 5 MG, QOD
     Route: 048
  6. PREDNISONE [Suspect]
     Dosage: 2.5 MG, QOD
     Route: 048
  7. PREDNISONE [Suspect]
     Dosage: 50 MG, QD
  8. DURAGESIC-100 [Concomitant]
     Dosage: 100 MCG/HR, Q72H
  9. VICODIN [Concomitant]
  10. DARVON [Concomitant]
  11. REMERON [Concomitant]
     Dosage: 45 MG, QD
  12. LASIX [Concomitant]
     Dosage: 40 MG, QD
  13. POTASSIUM CHLORIDE [Concomitant]
     Dosage: 20 MEQ, QD
  14. VELCADE [Concomitant]
     Indication: MULTIPLE MYELOMA
  15. THALIDOMIDE [Concomitant]
  16. SYNTHROID [Concomitant]
  17. CELEBREX [Concomitant]
  18. LESCOL [Concomitant]
  19. AUGMENTIN '250' [Concomitant]
     Dosage: 875 MG, BID
  20. COUMADIN [Concomitant]
     Dosage: 2.5 MG, UNK
  21. COUMADIN [Concomitant]
     Dosage: 5 MG, UNK
  22. COZAAR [Concomitant]
     Dosage: 50 MG, QD

REACTIONS (49)
  - ADENOMA BENIGN [None]
  - ANAL POLYP [None]
  - APICAL GRANULOMA [None]
  - ARTHRALGIA [None]
  - ASTHENIA [None]
  - BONE DISORDER [None]
  - BONE LESION [None]
  - BONE PAIN [None]
  - BRONCHITIS CHRONIC [None]
  - CARDIAC FAILURE CONGESTIVE [None]
  - CATARACT [None]
  - CATARACT OPERATION [None]
  - CELLULITIS [None]
  - CEREBRAL ATROPHY [None]
  - CHRONIC OBSTRUCTIVE PULMONARY DISEASE [None]
  - DEATH [None]
  - DEHYDRATION [None]
  - DIARRHOEA [None]
  - DISEASE PROGRESSION [None]
  - DIVERTICULUM [None]
  - FEMUR FRACTURE [None]
  - GASTRITIS [None]
  - GINGIVAL SWELLING [None]
  - HAEMORRHOIDS [None]
  - HYPOTENSION [None]
  - IMPAIRED HEALING [None]
  - INFECTION [None]
  - LEUKOPENIA [None]
  - LIMB OPERATION [None]
  - MULTIPLE MYELOMA [None]
  - OEDEMA PERIPHERAL [None]
  - OSTEONECROSIS [None]
  - OSTEOPOROSIS [None]
  - PAIN [None]
  - PHARYNGOLARYNGEAL PAIN [None]
  - PNEUMONIA [None]
  - PNEUMONIA ASPIRATION [None]
  - PRODUCTIVE COUGH [None]
  - PSEUDOMEMBRANOUS COLITIS [None]
  - PYREXIA [None]
  - STOMATITIS [None]
  - STRESS FRACTURE [None]
  - TACHYCARDIA [None]
  - TOOTH DISORDER [None]
  - TOOTH EXTRACTION [None]
  - TOOTHACHE [None]
  - VISUAL ACUITY REDUCED [None]
  - WALKING AID USER [None]
  - WOUND DRAINAGE [None]
